FAERS Safety Report 7833660-3 (Version None)
Quarter: 2011Q4

REPORT INFORMATION
  Report Type: 
  Country: None (occurrence: None)
  Receive Date: 20111024
  Receipt Date: 20111018
  Transmission Date: 20120403
  Serious: Yes (Hospitalization)
  Sender: FDA-Public Use
  Company Number: US-B.I. PHARMACEUTICALS,INC./RIDGEFIELD-2011-BP-24499BP

PATIENT
  Sex: Male

DRUGS (8)
  1. TAMSULOSIN HCL [Concomitant]
     Indication: BLADDER DISORDER
     Dosage: 0.4 MG
     Route: 048
     Dates: start: 20110901
  2. DOCUSATE [Concomitant]
     Indication: CONSTIPATION
     Dosage: 100 MG
     Route: 048
     Dates: start: 20110901
  3. MILK THISTLE [Concomitant]
     Indication: ROUTINE HEALTH MAINTENANCE
     Dosage: 1000 MG
     Route: 048
     Dates: start: 20060101
  4. FEROCON [Concomitant]
     Indication: FRACTURE
     Dosage: 25 MG
     Route: 048
     Dates: start: 20110901
  5. SPIRIVA [Suspect]
     Dosage: 18 MCG
     Route: 048
     Dates: start: 20111018, end: 20111018
  6. FISH OIL [Concomitant]
     Indication: ROUTINE HEALTH MAINTENANCE
     Dosage: 1000 MG
     Route: 048
     Dates: start: 20060101
  7. OMEPRAZOLE [Concomitant]
     Indication: GASTROOESOPHAGEAL REFLUX DISEASE
     Dosage: 40 MG
     Route: 048
     Dates: start: 20060101
  8. SPIRIVA [Suspect]
     Indication: CHRONIC OBSTRUCTIVE PULMONARY DISEASE
     Dosage: 18 MCG
     Route: 055
     Dates: start: 20080101

REACTIONS (6)
  - RIB FRACTURE [None]
  - FALL [None]
  - SPINAL FRACTURE [None]
  - ANKLE FRACTURE [None]
  - PELVIC FRACTURE [None]
  - INCORRECT ROUTE OF DRUG ADMINISTRATION [None]
